FAERS Safety Report 6726199-X (Version None)
Quarter: 2010Q2

REPORT INFORMATION
  Report Type: 
  Country: None (occurrence: None)
  Receive Date: 20100514
  Receipt Date: 20100510
  Transmission Date: 20101027
  Serious: Yes (Death, Hospitalization)
  Sender: FDA-Public Use
  Company Number: PHEH2010US01595

PATIENT
  Sex: Male

DRUGS (12)
  1. AFINITOR [Suspect]
     Indication: RENAL CANCER
     Dosage: 10 MG, DAILY
     Dates: start: 20091016
  2. ZOMETA [Suspect]
     Indication: METASTASES TO BONE
     Dosage: 4 MG, UNK
     Dates: start: 20090702
  3. COLACE [Concomitant]
  4. FERATAB [Concomitant]
  5. VITAMIN D [Concomitant]
  6. OSCAL [Concomitant]
  7. TETRACYCLINE [Concomitant]
  8. HYDROCORTISONE [Concomitant]
  9. NYSTATIN [Concomitant]
  10. BENADRYL [Concomitant]
  11. COMPAZINE [Concomitant]
  12. TUSSIONEX [Concomitant]

REACTIONS (4)
  - HYPOVOLAEMIA [None]
  - PARACENTESIS [None]
  - RENAL FAILURE [None]
  - RENAL TUBULAR NECROSIS [None]
